FAERS Safety Report 4721616-9 (Version None)
Quarter: 2005Q3

REPORT INFORMATION
  Report Type: 
  Country: None (occurrence: None)
  Receive Date: 20050721
  Receipt Date: 20050104
  Transmission Date: 20060218
  Serious: No
  Sender: FDA-Public Use
  Company Number: US-BRISTOL-MYERS SQUIBB COMPANY-12812640

PATIENT
  Age: 83 Year
  Sex: Male
  Weight: 70 kg

DRUGS (5)
  1. COUMADIN [Suspect]
     Indication: AORTIC VALVE REPLACEMENT
     Dosage: 5MG STARTED ^YEARS AGO^;DOSE ADJUSTED ACCORDINGLY;THEN 5MG X 5 DAYS + 7.5MG X 2 DAYS (40MG/WEEK)
     Route: 048
  2. LASIX [Concomitant]
     Dosage: TAKEN DAILY FOR YEARS
  3. LOPRESSOR [Concomitant]
     Dosage: TAKEN DAILY FOR YEARS
  4. LANOXIN [Concomitant]
     Dosage: TAKEN DAILY FOR YEARS
  5. SYNTHROID [Concomitant]
     Dosage: TAKEN DAILY FOR YEARS

REACTIONS (1)
  - INTERNATIONAL NORMALISED RATIO FLUCTUATION [None]
